FAERS Safety Report 17036642 (Version 1)
Quarter: 2019Q4

REPORT INFORMATION
  Report Type: Spontaneous
  Country: US (occurrence: US)
  Receive Date: 20191015
  Receipt Date: 20191015
  Transmission Date: 20200122
  Serious: No
  Sender: FDA-Public Use
  Company Number: None

PATIENT
  Age: 86 Year
  Sex: Male
  Weight: 80 kg

DRUGS (1)
  1. CILOSTAZOL. [Suspect]
     Active Substance: CILOSTAZOL
     Indication: PERIPHERAL VASCULAR DISORDER
     Route: 048
     Dates: start: 20181120, end: 20181205

REACTIONS (3)
  - Asthenia [None]
  - Fall [None]
  - Gait disturbance [None]

NARRATIVE: CASE EVENT DATE: 20181205
